FAERS Safety Report 6717013-7 (Version None)
Quarter: 2010Q2

REPORT INFORMATION
  Report Type: 
  Country: None (occurrence: None)
  Receive Date: 20100506
  Receipt Date: 20100506
  Transmission Date: 20101027
  Serious: Yes (Other)
  Sender: FDA-Public Use
  Company Number: None

PATIENT
  Age: 68 Year
  Sex: Female
  Weight: 82.1011 kg

DRUGS (1)
  1. ADVAIR DISKUS 100/50 [Suspect]
     Indication: UPPER RESPIRATORY TRACT CONGESTION
     Dosage: 1 PUFF 1-2/DAY ORAL
     Route: 048
     Dates: start: 20100219, end: 20100401

REACTIONS (5)
  - BRONCHITIS [None]
  - DYSPHONIA [None]
  - PAIN [None]
  - RESPIRATORY TRACT CONGESTION [None]
  - TRACHEAL DISORDER [None]
